FAERS Safety Report 9490764 (Version 1)
Quarter: 2013Q3

REPORT INFORMATION
  Report Type: Spontaneous
  Country: US (occurrence: None)
  Receive Date: 20130828
  Receipt Date: 20130828
  Transmission Date: 20140515
  Serious: No
  Sender: FDA-Public Use
  Company Number: None

PATIENT
  Sex: Female
  Weight: 91.63 kg

DRUGS (1)
  1. SINGULAIR [Suspect]
     Dosage: SINGULAIR 10MG  ONE PO QHS?LONG TERM / YRS.
     Route: 048

REACTIONS (2)
  - Drug ineffective [None]
  - Epistaxis [None]
